FAERS Safety Report 9238269 (Version 1)
Quarter: 2013Q2

REPORT INFORMATION
  Report Type: Spontaneous
  Country: IT (occurrence: None)
  Receive Date: 20130416
  Receipt Date: 20130416
  Transmission Date: 20140414
  Serious: Yes (Hospitalization, Other)
  Sender: FDA-Public Use
  Company Number: GER/ITL/13/0028965

PATIENT
  Age: 64 Year
  Sex: Male

DRUGS (1)
  1. RAMIPRIL (RAMIPRIL) [Suspect]
     Indication: PRODUCT USED FOR UNKNOWN INDICATION
     Route: 048
     Dates: start: 20130301, end: 20130301

REACTIONS (3)
  - Shock [None]
  - Drug abuse [None]
  - Intentional overdose [None]
